FAERS Safety Report 10014629 (Version 3)
Quarter: 2014Q2

REPORT INFORMATION
  Report Type: Spontaneous
  Country: CN (occurrence: CN)
  Receive Date: 20140317
  Receipt Date: 20140404
  Transmission Date: 20141212
  Serious: Yes (Other)
  Sender: FDA-Public Use
  Company Number: CN-ASTRAZENECA-2013SE94391

PATIENT
  Age: 41 Year
  Sex: Female

DRUGS (6)
  1. ZOLADEX [Suspect]
     Indication: BREAST CANCER
     Dosage: 3.6 MG, EVERY 29 DAYS
     Route: 058
     Dates: start: 20121206
  2. ZOLADEX [Suspect]
     Indication: BREAST CANCER
     Route: 058
     Dates: start: 20131228
  3. ZOLADEX [Suspect]
     Indication: BREAST CANCER
     Route: 058
     Dates: start: 20131230
  4. TAMOXIFEN [Concomitant]
     Route: 048
  5. LEVAMLODIPINE BESYLATE [Concomitant]
     Route: 048
  6. BISOPROLOL FUMARATE [Concomitant]
     Route: 048

REACTIONS (10)
  - Ovarian germ cell teratoma [Unknown]
  - Asthma [Unknown]
  - Pain in extremity [Unknown]
  - Sleep disorder [Unknown]
  - Palpitations [Unknown]
  - Dry mouth [Unknown]
  - Haemorrhagic ovarian cyst [Unknown]
  - Hyperhidrosis [Recovered/Resolved]
  - Blood pressure increased [Recovering/Resolving]
  - Medication error [Recovered/Resolved]
